FAERS Safety Report 8317724 (Version 2)
Quarter: 2013Q2

REPORT INFORMATION
  Report Type: Spontaneous
  Country: MX (occurrence: MX)
  Receive Date: 20120102
  Receipt Date: 20130415
  Transmission Date: 20140414
  Serious: Yes (Death)
  Sender: FDA-Public Use
  Company Number: PHHY2011MX113396

PATIENT
  Age: 82 Year
  Sex: Male

DRUGS (2)
  1. EXFORGE HCT [Suspect]
     Dosage: 1 DF (320 MG VALS,10 MG AMLO, 25 MG HYDR), DAILY
     Route: 048
  2. RASILEZ [Suspect]

REACTIONS (1)
  - Death [Fatal]
